FAERS Safety Report 8314243-8 (Version None)
Quarter: 2012Q2

REPORT INFORMATION
  Report Type: 
  Country: None (occurrence: None)
  Receive Date: 20120426
  Receipt Date: 20120420
  Transmission Date: 20120825
  Serious: Yes (Other)
  Sender: FDA-Public Use
  Company Number: US-GILEAD-2012-0054111

PATIENT
  Sex: Female

DRUGS (3)
  1. EMTRICITABINE AND TENOFOVIR DISOPROXIL FUMARATE [Suspect]
     Indication: HIV INFECTION
     Dosage: 1 DF, QD
     Route: 064
     Dates: start: 20110615, end: 20111101
  2. LOPINAVIR AND RITONAVIR [Concomitant]
     Dosage: UNK
     Route: 064
     Dates: end: 20111101
  3. KALETRA [Concomitant]
     Dosage: UNK
     Route: 064
     Dates: end: 20111101

REACTIONS (2)
  - SMALL FOR DATES BABY [None]
  - HIV TEST POSITIVE [None]
